FAERS Safety Report 14013257 (Version 2)
Quarter: 2020Q4

REPORT INFORMATION
  Report Type: Spontaneous
  Country: FR (occurrence: FR)
  Receive Date: 20170926
  Receipt Date: 20201030
  Transmission Date: 20210113
  Serious: Yes (Death, Life-Threatening, Hospitalization)
  Sender: FDA-Public Use
  Company Number: FR-PFIZER INC-2017410281

PATIENT
  Age: 57 Year
  Sex: Female
  Weight: 54.5 kg

DRUGS (11)
  1. CARBOPLATINE HOSPIRA [Suspect]
     Active Substance: CARBOPLATIN
     Dosage: 300 - 400 MG/M2 (CYCLE 3)
     Route: 041
     Dates: start: 20160205, end: 20160205
  2. CARBOPLATINE HOSPIRA [Suspect]
     Active Substance: CARBOPLATIN
     Dosage: FREQ:21 D;300 - 400 MG/M2
     Route: 041
     Dates: start: 20150123, end: 20160205
  3. PACLITAXEL. [Concomitant]
     Active Substance: PACLITAXEL
     Dosage: 175 MG, CYCLIC  (CYCLE 2)
     Route: 041
     Dates: start: 20160115, end: 20160115
  4. CARBOPLATINE HOSPIRA [Suspect]
     Active Substance: CARBOPLATIN
     Dosage: 300 - 400 MG/M2 (CYCLE 2)
     Route: 041
     Dates: start: 20160115, end: 20160115
  5. LYNPARZA [Concomitant]
     Active Substance: OLAPARIB
     Indication: OVARIAN EPITHELIAL CANCER
     Dosage: 100 MG, 2X/DAY
     Route: 048
     Dates: start: 201606, end: 20170726
  6. VERAPAMIL HYDROCHLOIRDE [Concomitant]
     Active Substance: VERAPAMIL HYDROCHLORIDE
     Indication: HYPERTENSION
     Dosage: 100 MG, 1X/DAY
     Route: 048
  7. PACLITAXEL. [Concomitant]
     Active Substance: PACLITAXEL
     Dosage: 175 MG, EVERY 21 DAYS
     Route: 041
     Dates: start: 20150123, end: 20160205
  8. PACLITAXEL. [Concomitant]
     Active Substance: PACLITAXEL
     Indication: OVARIAN EPITHELIAL CANCER
     Dosage: 175 MG, EVERY 3 MONTHS
     Route: 041
     Dates: start: 20151223, end: 20151223
  9. PACLITAXEL. [Concomitant]
     Active Substance: PACLITAXEL
     Dosage: 175 MG, CYCLIC (CYCLE 3)
     Route: 041
     Dates: start: 20160205, end: 20160205
  10. AVASTIN [Concomitant]
     Active Substance: BEVACIZUMAB
     Indication: OVARIAN EPITHELIAL CANCER
     Dosage: 15 MG/KG, EVERY 3 WEEKS
     Route: 041
     Dates: start: 20151223, end: 20170718
  11. CARBOPLATINE HOSPIRA [Suspect]
     Active Substance: CARBOPLATIN
     Indication: OVARIAN EPITHELIAL CANCER
     Dosage: 300 - 400 MG/M2 (CYCLE 1)
     Route: 041
     Dates: start: 20151223, end: 20151223

REACTIONS (12)
  - Neoplasm progression [Fatal]
  - Portal hypertension [Not Recovered/Not Resolved]
  - Splenomegaly [Not Recovered/Not Resolved]
  - Gastric varices [Not Recovered/Not Resolved]
  - Portal hypertension [Not Recovered/Not Resolved]
  - Transaminases increased [Not Recovered/Not Resolved]
  - Collateral circulation [Not Recovered/Not Resolved]
  - Splenomegaly [Not Recovered/Not Resolved]
  - Liver disorder [Not Recovered/Not Resolved]
  - Gastric varices [Not Recovered/Not Resolved]
  - Collateral circulation [Not Recovered/Not Resolved]
  - Blood lactate dehydrogenase increased [Not Recovered/Not Resolved]

NARRATIVE: CASE EVENT DATE: 201607
